FAERS Safety Report 11422234 (Version 1)
Quarter: 2015Q3

REPORT INFORMATION
  Report Type: Spontaneous
  Country: US (occurrence: None)
  Receive Date: 20150826
  Receipt Date: 20150826
  Transmission Date: 20151125
  Serious: No
  Sender: FDA-Public Use
  Company Number: None

PATIENT
  Age: 84 Year
  Sex: Female

DRUGS (2)
  1. LYRICA [Concomitant]
     Active Substance: PREGABALIN
  2. TASIGNA [Suspect]
     Active Substance: NILOTINIB
     Indication: METASTATIC NEOPLASM
     Route: 048
     Dates: start: 20140324

REACTIONS (4)
  - Skin disorder [None]
  - Pain of skin [None]
  - Skin lesion [None]
  - Pain [None]

NARRATIVE: CASE EVENT DATE: 20150101
